FAERS Safety Report 9109133 (Version 1)
Quarter: 2013Q1

REPORT INFORMATION
  Report Type: Spontaneous
  Country: GB (occurrence: GB)
  Receive Date: 20130222
  Receipt Date: 20130222
  Transmission Date: 20140127
  Serious: Yes (Other)
  Sender: FDA-Public Use
  Company Number: GB-GLAXOSMITHKLINE-B0868507A

PATIENT
  Age: 57 Year
  Sex: Female
  Weight: 58.96 kg

DRUGS (3)
  1. SEROXAT [Suspect]
     Indication: DEPRESSION SUICIDAL
     Dosage: 30MG PER DAY
     Route: 048
     Dates: start: 2009
  2. CHONDROITIN [Concomitant]
  3. MULTIVITAMIN [Concomitant]

REACTIONS (2)
  - Hypersomnia [Not Recovered/Not Resolved]
  - Fatigue [Not Recovered/Not Resolved]
